FAERS Safety Report 7238832-7 (Version None)
Quarter: 2011Q1

REPORT INFORMATION
  Report Type: 
  Country: None (occurrence: None)
  Receive Date: 20110121
  Receipt Date: 20110110
  Transmission Date: 20110831
  Serious: Yes (Hospitalization, Other)
  Sender: FDA-Public Use
  Company Number: PHHY2010US78219

PATIENT
  Sex: Female
  Weight: 148 kg

DRUGS (12)
  1. RECLAST [Suspect]
     Dosage: 5 MG, UNK
     Route: 042
  2. VITAMIN D [Concomitant]
  3. ASPIRIN [Concomitant]
  4. DIOVAN [Suspect]
     Dosage: 160 MG, UNK
  5. NEXIUM [Concomitant]
  6. FUROSIDE [Concomitant]
  7. SKELAXIN [Concomitant]
  8. TYLENOL-500 [Concomitant]
  9. JANUMET [Concomitant]
  10. CELEBREX [Concomitant]
  11. GLIMEPIRIDE [Concomitant]
  12. CALCIUM [Concomitant]

REACTIONS (6)
  - ARTHROPATHY [None]
  - GASTROOESOPHAGEAL REFLUX DISEASE [None]
  - BACK DISORDER [None]
  - BLOOD PRESSURE INADEQUATELY CONTROLLED [None]
  - BLOOD GLUCOSE INCREASED [None]
  - VOMITING [None]
